FAERS Safety Report 7931651-5 (Version None)
Quarter: 2011Q4

REPORT INFORMATION
  Report Type: 
  Country: None (occurrence: None)
  Receive Date: 20111121
  Receipt Date: 20111115
  Transmission Date: 20120403
  Serious: Yes (Other)
  Sender: FDA-Public Use
  Company Number: PHHY2011FI82104

PATIENT
  Sex: Male

DRUGS (1)
  1. GLEEVEC [Suspect]
     Indication: CHRONIC MYELOID LEUKAEMIA
     Dosage: 400 MG, BID
     Dates: start: 20060101, end: 20110909

REACTIONS (6)
  - BONE DISORDER [None]
  - OSTEITIS [None]
  - DRUG INEFFECTIVE [None]
  - CONJUNCTIVAL HAEMORRHAGE [None]
  - OSTEOMYELITIS [None]
  - SWELLING [None]
